FAERS Safety Report 9789593 (Version 1)
Quarter: 2013Q4

REPORT INFORMATION
  Report Type: Report from Study
  Country: US (occurrence: US)
  Receive Date: 20131231
  Receipt Date: 20131231
  Transmission Date: 20140711
  Serious: Yes (Life-Threatening, Hospitalization, Other)
  Sender: FDA-Public Use
  Company Number: US-ACTELION-A-US2013-92800

PATIENT
  Age: 45 Year
  Sex: Female

DRUGS (1)
  1. TRACLEER [Suspect]
     Indication: VENOUS INSUFFICIENCY
     Route: 048

REACTIONS (3)
  - Terminal state [Unknown]
  - Malaise [Unknown]
  - Convulsion [Unknown]
